FAERS Safety Report 7338204-0 (Version None)
Quarter: 2011Q1

REPORT INFORMATION
  Report Type: 
  Country: None (occurrence: None)
  Receive Date: 20110303
  Receipt Date: 20110303
  Transmission Date: 20110831
  Serious: Yes (Other)
  Sender: FDA-Public Use
  Company Number: None

PATIENT
  Age: 67 Year
  Sex: Male
  Weight: 74.3899 kg

DRUGS (2)
  1. PRADAXA [Suspect]
     Indication: ATRIAL FIBRILLATION
     Dosage: 150MG TWICE A DAY BUCCAL
     Route: 002
     Dates: start: 20110210, end: 20110217
  2. PRADAXA [Suspect]
     Indication: ATRIAL FIBRILLATION
     Dosage: 150MG TWICE A DAY BUCCAL
     Route: 002
     Dates: start: 20110218, end: 20110226

REACTIONS (5)
  - ANORECTAL DISCOMFORT [None]
  - FAECAL INCONTINENCE [None]
  - GASTROINTESTINAL TRACT IRRITATION [None]
  - ANAL HAEMORRHAGE [None]
  - DIARRHOEA [None]
